FAERS Safety Report 7534109-0 (Version None)
Quarter: 2011Q2

REPORT INFORMATION
  Report Type: 
  Country: None (occurrence: None)
  Receive Date: 20110608
  Receipt Date: 20061019
  Transmission Date: 20111010
  Serious: Yes (Death)
  Sender: FDA-Public Use
  Company Number: PHHO2006KR17411

PATIENT
  Sex: Female

DRUGS (3)
  1. ATOCK [Concomitant]
  2. CODEINE SULFATE [Concomitant]
  3. FEMARA [Suspect]
     Indication: BREAST CANCER STAGE IV
     Dosage: 2.5 MG, QD
     Route: 048
     Dates: start: 20050516

REACTIONS (1)
  - DEATH [None]
